FAERS Safety Report 10824476 (Version 1)
Quarter: 2015Q1

REPORT INFORMATION
  Report Type: Report from Study
  Country: US (occurrence: US)
  Receive Date: 20150219
  Receipt Date: 20150219
  Transmission Date: 20150721
  Serious: No
  Sender: FDA-Public Use
  Company Number: US-ABBVIE-14K-163-1312759-00

PATIENT
  Age: 50 Year
  Sex: Male
  Weight: 83.54 kg

DRUGS (6)
  1. HUMIRA [Suspect]
     Active Substance: ADALIMUMAB
     Indication: PSORIATIC ARTHROPATHY
     Route: 058
     Dates: start: 201210, end: 201401
  2. METHOTREXATE [Concomitant]
     Active Substance: METHOTREXATE
     Indication: PSORIATIC ARTHROPATHY
  3. HUMIRA [Suspect]
     Active Substance: ADALIMUMAB
     Route: 058
     Dates: start: 201401, end: 201406
  4. FOLIC ACID. [Concomitant]
     Active Substance: FOLIC ACID
     Indication: PSORIATIC ARTHROPATHY
  5. MELOXICAM. [Concomitant]
     Active Substance: MELOXICAM
     Indication: PSORIATIC ARTHROPATHY
  6. HUMIRA [Suspect]
     Active Substance: ADALIMUMAB
     Route: 058
     Dates: start: 201406

REACTIONS (9)
  - Immunodeficiency [Unknown]
  - Neuralgia [Recovering/Resolving]
  - Cheilitis [Not Recovered/Not Resolved]
  - Herpes zoster [Recovered/Resolved]
  - Lip swelling [Not Recovered/Not Resolved]
  - Drug effect incomplete [Recovered/Resolved]
  - Pruritus [Not Recovered/Not Resolved]
  - Acne [Recovered/Resolved]
  - Oral herpes [Not Recovered/Not Resolved]

NARRATIVE: CASE EVENT DATE: 201210
